FAERS Safety Report 6938094-1 (Version None)
Quarter: 2010Q3

REPORT INFORMATION
  Report Type: 
  Country: None (occurrence: None)
  Receive Date: 20100824
  Receipt Date: 20100816
  Transmission Date: 20110219
  Serious: Yes (Life-Threatening, Hospitalization, Other)
  Sender: FDA-Public Use
  Company Number: GB-ELI_LILLY_AND_COMPANY-GB201007002835

PATIENT
  Sex: Male
  Weight: 98 kg

DRUGS (14)
  1. ALIMTA [Suspect]
     Indication: NON-SMALL CELL LUNG CANCER
     Dosage: 1050 MG, UNKNOWN
     Route: 042
     Dates: start: 20100419
  2. ALIMTA [Suspect]
     Dosage: 850 MG, UNKNOWN
     Route: 042
     Dates: start: 20100429
  3. ALIMTA [Suspect]
     Dosage: 525 MG, UNKNOWN
     Route: 042
     Dates: start: 20100520
  4. CARBOPLATIN [Concomitant]
     Indication: NON-SMALL CELL LUNG CANCER
     Dosage: 670 MG, UNKNOWN FOR CYCLE 1
  5. CISPLATIN [Concomitant]
     Indication: NON-SMALL CELL LUNG CANCER
     Dosage: 127 MG, UNK FOR CYCLE 2
  6. CISPLATIN [Concomitant]
     Dosage: 111 MG, UNK FOR CYCLE 3
  7. FOLIC ACID [Concomitant]
     Indication: VITAMIN SUPPLEMENTATION
  8. VITAMIN B-12 [Concomitant]
     Indication: VITAMIN SUPPLEMENTATION
  9. LEVOTHYROXINE SODIUM [Concomitant]
  10. FRUSEMIDE [Concomitant]
  11. AMITIPTYLINE [Concomitant]
  12. ASPIRIN [Concomitant]
  13. SIMVASTATIN [Concomitant]
  14. ACETAMINOPHEN AND CODEINE PHOSPHATE [Concomitant]

REACTIONS (8)
  - DIARRHOEA [None]
  - FATIGUE [None]
  - GASTRITIS EROSIVE [None]
  - GASTROINTESTINAL HAEMORRHAGE [None]
  - MALIGNANT NEOPLASM PROGRESSION [None]
  - MOUTH ULCERATION [None]
  - MUCOSAL INFLAMMATION [None]
  - PANCYTOPENIA [None]
